FAERS Safety Report 8267712-3 (Version None)
Quarter: 2012Q2

REPORT INFORMATION
  Report Type: 
  Country: None (occurrence: None)
  Receive Date: 20120405
  Receipt Date: 20120405
  Transmission Date: 20120825
  Serious: Yes (Hospitalization)
  Sender: FDA-Public Use
  Company Number: None

PATIENT
  Age: 54 Year
  Sex: Male
  Weight: 80.9 kg

DRUGS (1)
  1. PHENYTOIN [Suspect]
     Indication: CONVULSION
     Dosage: 200 MG AT BEDTIME PO
     Route: 048
     Dates: start: 20110706

REACTIONS (7)
  - GAIT DISTURBANCE [None]
  - PRODUCT SUBSTITUTION ISSUE [None]
  - RIB FRACTURE [None]
  - ASTERIXIS [None]
  - ATAXIA [None]
  - TOXICITY TO VARIOUS AGENTS [None]
  - FALL [None]
